FAERS Safety Report 8142230-1 (Version None)
Quarter: 2012Q1

REPORT INFORMATION
  Report Type: 
  Country: None (occurrence: None)
  Receive Date: 20120103
  Receipt Date: 20111017
  Transmission Date: 20120608
  Serious: No
  Sender: FDA-Public Use
  Company Number: AE-2011-002390

PATIENT
  Age: 58 Year
  Sex: Female
  Weight: 76.6579 kg

DRUGS (7)
  1. TRIAMTERENE (TRIAMTERENE) [Concomitant]
  2. CYMBALTA [Concomitant]
  3. INCIVEK [Suspect]
     Dosage: 2250 MG (750 MG, 3 IN 1 D)
     Dates: start: 20111014
  4. DEPLIN (FOLATE SODIUM) [Concomitant]
  5. RIBAVIRIN [Concomitant]
  6. PEG-INTRON [Concomitant]
  7. POTASSIUM CHLORIDE [Concomitant]

REACTIONS (2)
  - DECREASED APPETITE [None]
  - WEIGHT DECREASED [None]
